FAERS Safety Report 13291941 (Version 10)
Quarter: 2018Q3

REPORT INFORMATION
  Report Type: Report from Study
  Country: FI (occurrence: FI)
  Receive Date: 20170303
  Receipt Date: 20180725
  Transmission Date: 20181010
  Serious: Yes (Hospitalization)
  Sender: FDA-Public Use
  Company Number: FI-SA-2015SA072395

PATIENT
  Age: 40 Year
  Sex: Female
  Weight: 84 kg

DRUGS (10)
  1. ZOPINOX [Concomitant]
     Active Substance: ZOPICLONE
     Dosage: UNK
  2. HISTEC [Concomitant]
     Active Substance: CETIRIZINE HYDROCHLORIDE
     Indication: PROPHYLAXIS
     Dosage: 10 MG,QD
     Route: 048
     Dates: start: 20150323
  3. NEURONTIN [Concomitant]
     Active Substance: GABAPENTIN
     Indication: PROPHYLAXIS
     Dosage: 600 MG,QD
     Route: 048
     Dates: start: 20020101
  4. BURANA [Concomitant]
     Active Substance: IBUPROFEN
     Indication: DRUG THERAPY
     Dosage: 400 MG,QD
     Route: 048
     Dates: start: 20020101
  5. ALEMTUZUMAB [Suspect]
     Active Substance: ALEMTUZUMAB
     Indication: MULTIPLE SCLEROSIS RELAPSE
     Dosage: 12 MG,QD
     Route: 041
     Dates: start: 20150323, end: 20150327
  6. PARATABS [Concomitant]
     Indication: DRUG THERAPY
     Dosage: 1 G,QD
     Route: 048
     Dates: start: 20020101
  7. SOLU?MEDROL [Concomitant]
     Active Substance: METHYLPREDNISOLONE SODIUM SUCCINATE
     Dosage: UNK
  8. ACLOVIR [Concomitant]
     Dosage: UNK
  9. OMEPRAZOLE. [Concomitant]
     Active Substance: OMEPRAZOLE
     Dosage: UNK
  10. ALEMTUZUMAB [Suspect]
     Active Substance: ALEMTUZUMAB
     Dosage: 12 MG,QD
     Route: 041
     Dates: start: 20160321, end: 20160323

REACTIONS (12)
  - Hyperthyroidism [Recovered/Resolved]
  - Post procedural hypothyroidism [Recovered/Resolved with Sequelae]
  - Urticaria [Recovered/Resolved]
  - Eye disorder [Not Recovered/Not Resolved]
  - Tremor [Recovered/Resolved]
  - Endometriosis [Not Recovered/Not Resolved]
  - Gastrooesophageal reflux disease [Not Recovered/Not Resolved]
  - Alopecia [Not Recovered/Not Resolved]
  - Fatigue [Recovered/Resolved]
  - Hepatic enzyme increased [Not Recovered/Not Resolved]
  - Dizziness [Recovered/Resolved]
  - Bronchitis [Recovered/Resolved]

NARRATIVE: CASE EVENT DATE: 20150326
